FAERS Safety Report 10010521 (Version 1)
Quarter: 2014Q1

REPORT INFORMATION
  Report Type: Spontaneous
  Country: US (occurrence: US)
  Receive Date: 20140314
  Receipt Date: 20140314
  Transmission Date: 20141002
  Serious: Yes (Hospitalization, Other)
  Sender: FDA-Public Use
  Company Number: US-009507513-1403USA004979

PATIENT
  Sex: Female

DRUGS (3)
  1. JANUMET [Suspect]
     Dosage: UNK
     Route: 048
  2. JANUVIA [Suspect]
     Dosage: UNK
     Route: 048
  3. INVOKANA [Concomitant]
     Dosage: UNK

REACTIONS (1)
  - Renal failure [Recovered/Resolved]
